FAERS Safety Report 10061502 (Version 1)
Quarter: 2014Q2

REPORT INFORMATION
  Report Type: Spontaneous
  Country: US (occurrence: US)
  Receive Date: 20140407
  Receipt Date: 20140407
  Transmission Date: 20141212
  Serious: Yes (Hospitalization, Other)
  Sender: FDA-Public Use
  Company Number: US-ROCHE-1371771

PATIENT
  Sex: Female

DRUGS (13)
  1. BONIVA [Suspect]
     Indication: WRIST FRACTURE
     Route: 048
     Dates: start: 20140201
  2. NAPROSYN [Suspect]
     Indication: PRODUCT USED FOR UNKNOWN INDICATION
     Route: 065
  3. NORCO [Concomitant]
     Indication: ARTHRALGIA
     Dosage: 10/325 MG
     Route: 048
  4. AMIODARONE HCL [Concomitant]
     Indication: ATRIAL FIBRILLATION
     Route: 048
  5. CYMBALTA [Concomitant]
     Indication: DEPRESSION
     Route: 048
  6. DIGOXIN [Concomitant]
     Route: 048
  7. LEXAPRO [Concomitant]
  8. FUROSEMIDE [Concomitant]
     Route: 065
  9. POTASSIUM CHLORIDE [Concomitant]
     Route: 065
  10. DIOVAN [Concomitant]
     Route: 065
  11. SINGULAIR [Concomitant]
     Indication: ASTHMA
     Route: 065
  12. XANAX [Concomitant]
     Route: 065
  13. BABY ASPIRIN [Concomitant]
     Route: 065

REACTIONS (21)
  - Cardiac fibrillation [Recovered/Resolved]
  - Cardiac pacemaker replacement [Unknown]
  - Cardiac pacemaker battery replacement [Unknown]
  - Implantable defibrillator insertion [Unknown]
  - Hysterectomy [Unknown]
  - Bladder operation [Unknown]
  - Spinal fusion surgery [Unknown]
  - Arthroscopy [Unknown]
  - Cholecystectomy [Unknown]
  - Tonsillectomy [Unknown]
  - Cardiac failure congestive [Unknown]
  - Wrist surgery [Unknown]
  - Abdominal pain upper [Unknown]
  - Asthma [Unknown]
  - Wheezing [Not Recovered/Not Resolved]
  - Cough [Not Recovered/Not Resolved]
  - Fatigue [Not Recovered/Not Resolved]
  - Arthritis [Unknown]
  - Rotator cuff syndrome [Unknown]
  - Dental caries [Unknown]
  - Pain [Not Recovered/Not Resolved]
